FAERS Safety Report 20581426 (Version 1)
Quarter: 2022Q1

REPORT INFORMATION
  Report Type: Spontaneous
  Country: AU (occurrence: AU)
  Receive Date: 20220311
  Receipt Date: 20220311
  Transmission Date: 20220423
  Serious: Yes (Death, Other)
  Sender: FDA-Public Use
  Company Number: AU-GLAXOSMITHKLINE-AU2022APC043702

PATIENT
  Sex: Female

DRUGS (2)
  1. AMBRISENTAN [Suspect]
     Active Substance: AMBRISENTAN
     Indication: Product used for unknown indication
     Dosage: 10 MG, QD
     Route: 048
  2. SILDENAFIL [Suspect]
     Active Substance: SILDENAFIL
     Indication: Product used for unknown indication
     Dosage: 20 MG, TID
     Route: 048

REACTIONS (1)
  - Death [Fatal]
